FAERS Safety Report 8424245-9 (Version None)
Quarter: 2012Q2

REPORT INFORMATION
  Report Type: 
  Country: None (occurrence: None)
  Receive Date: 20120608
  Receipt Date: 20111220
  Transmission Date: 20120825
  Serious: No
  Sender: FDA-Public Use
  Company Number: US-ASTRAZENECA-2011SE72453

PATIENT
  Age: 82 Year
  Sex: Female

DRUGS (1)
  1. PULMICORT FLEXHALER [Suspect]
     Dosage: 180MCG  2 PUFFS EVERYDAY
     Route: 055

REACTIONS (2)
  - MALAISE [None]
  - INCORRECT DOSE ADMINISTERED BY DEVICE [None]
